FAERS Safety Report 7082884-4 (Version None)
Quarter: 2010Q4

REPORT INFORMATION
  Report Type: 
  Country: None (occurrence: None)
  Receive Date: 20101104
  Receipt Date: 20101022
  Transmission Date: 20110411
  Serious: Yes (Other)
  Sender: FDA-Public Use
  Company Number: PHHY2010JP04745

PATIENT
  Age: 59 Year
  Sex: Female

DRUGS (7)
  1. AREDIA [Suspect]
     Indication: METASTASES TO BONE
     Dosage: 90 MG, QMO
     Dates: start: 20040901, end: 20050701
  2. AREDIA [Suspect]
     Dosage: 45 MG, QMO
     Dates: start: 20050801
  3. ZOMETA [Suspect]
     Indication: METASTASES TO BONE
     Dosage: 4 MG, QMO
     Dates: start: 20060501, end: 20081001
  4. TRASTUZUMAB [Suspect]
     Dosage: 212 MG/WEEK
     Dates: start: 20040701
  5. TRASTUZUMAB [Suspect]
     Dosage: 212 MG/WEEK
     Dates: start: 20040901, end: 20050701
  6. TRASTUZUMAB [Suspect]
     Dosage: 212 MG ALTERNATE WEEK
     Dates: start: 20050801
  7. PACLITAXEL [Suspect]
     Dosage: 163 MG/WEEK
     Dates: start: 20040701

REACTIONS (19)
  - ANAEMIA [None]
  - BLOOD CREATININE INCREASED [None]
  - BLOOD UREA INCREASED [None]
  - BONE DISORDER [None]
  - C-REACTIVE PROTEIN INCREASED [None]
  - DENTAL CARIES [None]
  - GINGIVAL BLEEDING [None]
  - HYPOAESTHESIA ORAL [None]
  - INFECTION [None]
  - JAW OPERATION [None]
  - LOOSE TOOTH [None]
  - ORAL CAVITY FISTULA [None]
  - OSTEONECROSIS OF JAW [None]
  - PAIN IN JAW [None]
  - PRIMARY SEQUESTRUM [None]
  - PURULENT DISCHARGE [None]
  - SEQUESTRECTOMY [None]
  - TOOTH EXTRACTION [None]
  - TOOTH LOSS [None]
